FAERS Safety Report 12929269 (Version 1)
Quarter: 2016Q4

REPORT INFORMATION
  Report Type: Spontaneous
  Country: US (occurrence: US)
  Receive Date: 20161110
  Receipt Date: 20161110
  Transmission Date: 20170207
  Serious: No
  Sender: FDA-Public Use
  Company Number: US-BAYER-2016-215739

PATIENT
  Age: 59 Year
  Sex: Male
  Weight: 147.85 kg

DRUGS (5)
  1. VENTOLIN [BECLOMETASONE DIPROPIONATE,SALBUTAMOL] [Concomitant]
  2. MIRALAX [Suspect]
     Active Substance: POLYETHYLENE GLYCOL 3350
     Indication: GASTROINTESTINAL DISORDER
     Dosage: 1 DF, UNK
     Route: 048
     Dates: start: 20161104, end: 20161107
  3. LORAZEPAM. [Concomitant]
     Active Substance: LORAZEPAM
  4. IMODIUM [LOPERAMIDE HYDROCHLORIDE,SIMETICONE] [Concomitant]
  5. DIGOXIN. [Concomitant]
     Active Substance: DIGOXIN

REACTIONS (3)
  - Faeces soft [Recovered/Resolved]
  - Abdominal discomfort [Not Recovered/Not Resolved]
  - Product use issue [None]

NARRATIVE: CASE EVENT DATE: 20161104
